FAERS Safety Report 10154235 (Version 2)
Quarter: 2014Q3

REPORT INFORMATION
  Report Type: Spontaneous
  Country: US (occurrence: US)
  Receive Date: 20140506
  Receipt Date: 20140703
  Transmission Date: 20150326
  Serious: No
  Sender: FDA-Public Use
  Company Number: US-PFIZER INC-2014119254

PATIENT
  Age: 64 Year
  Sex: Female

DRUGS (9)
  1. PAMELOR [Suspect]
     Active Substance: NORTRIPTYLINE HYDROCHLORIDE
     Dosage: UNK
  2. FLAGYL [Suspect]
     Active Substance: METRONIDAZOLE\METRONIDAZOLE HYDROCHLORIDE
     Dosage: UNK
  3. KEFLEX [Suspect]
     Active Substance: CEPHALEXIN
     Dosage: UNK
  4. ORUVAIL [Suspect]
     Active Substance: KETOPROFEN
     Dosage: UNK
  5. PENICILLIN NOS [Suspect]
     Active Substance: PENICILLIN
     Dosage: UNK
  6. NEURONTIN [Suspect]
     Active Substance: GABAPENTIN
     Dosage: UNK
  7. DURICEF [Suspect]
     Active Substance: CEFADROXIL
     Dosage: UNK
  8. ADVICOR [Suspect]
     Active Substance: LOVASTATIN\NIACIN
     Dosage: UNK
  9. CAPZASIN HP ARTHRITIS PAIN RELIEF [Suspect]
     Active Substance: CAPSAICIN
     Dosage: UNK

REACTIONS (1)
  - Drug hypersensitivity [Unknown]
